FAERS Safety Report 19717834 (Version 6)
Quarter: 2022Q4

REPORT INFORMATION
  Report Type: Report from Study
  Country: GB (occurrence: GB)
  Receive Date: 20210819
  Receipt Date: 20221201
  Transmission Date: 20230113
  Serious: Yes (Hospitalization)
  Sender: FDA-Public Use
  Company Number: NVSC2021GB079112

PATIENT
  Sex: Female

DRUGS (7)
  1. HYRIMOZ [Suspect]
     Active Substance: ADALIMUMAB-ADAZ
     Indication: Crohn^s disease
     Dosage: 160 MG, WEEK 0
     Route: 058
     Dates: start: 20210308
  2. HYRIMOZ [Suspect]
     Active Substance: ADALIMUMAB-ADAZ
     Dosage: 80 MG,WEEK 2
     Route: 058
  3. HYRIMOZ [Suspect]
     Active Substance: ADALIMUMAB-ADAZ
     Dosage: 40 MG, Q2W, 4 WEEKS, FORTNIGHTLY
     Route: 058
  4. HYRIMOZ [Suspect]
     Active Substance: ADALIMUMAB-ADAZ
     Dosage: UNK UNK, Q2W (40MG/0.8ML)
     Route: 058
  5. HYRIMOZ [Suspect]
     Active Substance: ADALIMUMAB-ADAZ
     Dosage: 40 MG, Q2W
     Route: 058
  6. HYRIMOZ [Suspect]
     Active Substance: ADALIMUMAB-ADAZ
     Dosage: UNK
     Route: 065
     Dates: start: 20220805
  7. PREDNISOLONE [Concomitant]
     Active Substance: PREDNISOLONE
     Indication: Product used for unknown indication
     Dosage: UNK
     Route: 065

REACTIONS (23)
  - Lower respiratory tract infection [Unknown]
  - Illness [Unknown]
  - Hypotension [Unknown]
  - Mental disorder [Unknown]
  - Hypersomnia [Unknown]
  - Pharyngitis [Unknown]
  - Lethargy [Unknown]
  - Abdominal distension [Not Recovered/Not Resolved]
  - Swelling [Unknown]
  - Peripheral swelling [Unknown]
  - Fatigue [Not Recovered/Not Resolved]
  - Swelling face [Not Recovered/Not Resolved]
  - Dyspnoea [Not Recovered/Not Resolved]
  - Chest pain [Not Recovered/Not Resolved]
  - Abdominal pain upper [Unknown]
  - Rash [Unknown]
  - Rash pruritic [Unknown]
  - Injection site bruising [Not Recovered/Not Resolved]
  - Malaise [Unknown]
  - Condition aggravated [Not Recovered/Not Resolved]
  - Gastrointestinal inflammation [Not Recovered/Not Resolved]
  - General physical health deterioration [Unknown]
  - Erythema [Not Recovered/Not Resolved]
